FAERS Safety Report 12479622 (Version 1)
Quarter: 2016Q2

REPORT INFORMATION
  Report Type: Spontaneous
  Country: US (occurrence: None)
  Receive Date: 20160617
  Receipt Date: 20160617
  Transmission Date: 20160815
  Serious: No
  Sender: FDA-Public Use
  Company Number: None

PATIENT
  Age: 82 Year
  Sex: Female

DRUGS (1)
  1. ONDANSETRON ODT 4 MG MYLAN [Suspect]
     Active Substance: ONDANSETRON
     Indication: NAUSEA
     Route: 048
     Dates: start: 20160220, end: 20160220

REACTIONS (2)
  - Constipation [None]
  - Faeces discoloured [None]

NARRATIVE: CASE EVENT DATE: 20160220
